FAERS Safety Report 6764398-1 (Version None)
Quarter: 2010Q2

REPORT INFORMATION
  Report Type: 
  Country: None (occurrence: None)
  Receive Date: 20100610
  Receipt Date: 20100601
  Transmission Date: 20101027
  Serious: Yes (Other)
  Sender: FDA-Public Use
  Company Number: US-ELI_LILLY_AND_COMPANY-US201006001447

PATIENT
  Age: 78 Year
  Sex: Female

DRUGS (6)
  1. EFFIENT [Suspect]
     Dosage: 60 MG, OTHER
     Dates: start: 20100501
  2. EFFIENT [Suspect]
     Dosage: 10 MG, OTHER
     Dates: start: 20100501
  3. ASPIRIN [Concomitant]
  4. COREG [Concomitant]
  5. LISINOPRIL [Concomitant]
  6. LIPITOR [Concomitant]

REACTIONS (3)
  - HAEMATOCRIT DECREASED [None]
  - HAEMOGLOBIN DECREASED [None]
  - HAEMORRHAGE [None]
